FAERS Safety Report 10308396 (Version 1)
Quarter: 2014Q3

REPORT INFORMATION
  Report Type: Spontaneous
  Country: US (occurrence: None)
  Receive Date: 20140715
  Receipt Date: 20140715
  Transmission Date: 20150326
  Serious: No
  Sender: FDA-Public Use
  Company Number: None

PATIENT
  Age: 1 Year
  Sex: Male

DRUGS (1)
  1. NEUPOGEN [Suspect]
     Active Substance: FILGRASTIM
     Indication: NEUTROPENIA
     Dosage: NEUPOGEN ?300MCG/ML 0.15 ML ?ON MONDAY AND THURSDAY ?SUBCUTANEOUSLY
     Route: 058
     Dates: start: 20140619

REACTIONS (2)
  - Hyperhidrosis [None]
  - Erythema [None]

NARRATIVE: CASE EVENT DATE: 20140619
